FAERS Safety Report 6584225-5 (Version None)
Quarter: 2010Q1

REPORT INFORMATION
  Report Type: 
  Country: None (occurrence: None)
  Receive Date: 20100216
  Receipt Date: 20091223
  Transmission Date: 20100710
  Serious: No
  Sender: FDA-Public Use
  Company Number: US-ABBOTT-10P-163-0617202-00

PATIENT
  Sex: Male
  Weight: 79.45 kg

DRUGS (1)
  1. SIMCOR [Suspect]
     Indication: HIGH DENSITY LIPOPROTEIN DECREASED
     Route: 048
     Dates: start: 20090801, end: 20090801

REACTIONS (1)
  - RECTAL HAEMORRHAGE [None]
